FAERS Safety Report 18862061 (Version 1)
Quarter: 2021Q1

REPORT INFORMATION
  Report Type: Spontaneous
  Country: US (occurrence: US)
  Receive Date: 20210209
  Receipt Date: 20210209
  Transmission Date: 20210420
  Serious: Yes (Death, Life-Threatening, Hospitalization, Other)
  Sender: FDA-Public Use
  Company Number: US-AMGEN-USASP2021018650

PATIENT
  Age: 38 Year
  Sex: Female

DRUGS (5)
  1. ADRIAMYCIN [Concomitant]
     Active Substance: DOXORUBICIN HYDROCHLORIDE
     Dosage: UNK UNK, Q3WK
  2. PERTUZUMAB. [Concomitant]
     Active Substance: PERTUZUMAB
     Dosage: UNK UNK, QWK
  3. CYCLOPHOSPHAMIDE. [Concomitant]
     Active Substance: CYCLOPHOSPHAMIDE
     Dosage: UNK, Q3WK
  4. PACLITAXEL. [Concomitant]
     Active Substance: PACLITAXEL
     Dosage: UNK UNK, QWK
  5. TRASTUZUMAB. [Suspect]
     Active Substance: TRASTUZUMAB
     Indication: HER2 POSITIVE BREAST CANCER
     Dosage: UNK UNK, QWK
     Route: 065

REACTIONS (4)
  - Osteosclerosis [Unknown]
  - Unresponsive to stimuli [Unknown]
  - Off label use [Unknown]
  - Breast cancer metastatic [Fatal]
